FAERS Safety Report 12545192 (Version 3)
Quarter: 2016Q3

REPORT INFORMATION
  Report Type: Spontaneous
  Country: US (occurrence: US)
  Receive Date: 20160711
  Receipt Date: 20160926
  Transmission Date: 20161109
  Serious: No
  Sender: FDA-Public Use
  Company Number: US-PFIZER INC-2016300504

PATIENT
  Age: 62 Year
  Sex: Female

DRUGS (1)
  1. TRIAZOLAM. [Suspect]
     Active Substance: TRIAZOLAM
     Indication: ERUCTATION
     Dosage: 0.125 MG, 1X/DAY (ONE AT 3 IN THE AFTERNOON)
     Route: 048
     Dates: start: 201511

REACTIONS (1)
  - Product use issue [Unknown]

NARRATIVE: CASE EVENT DATE: 20151123
